FAERS Safety Report 5452848-2 (Version None)
Quarter: 2007Q3

REPORT INFORMATION
  Report Type: 
  Country: None (occurrence: None)
  Receive Date: 20070914
  Receipt Date: 20070905
  Transmission Date: 20080115
  Serious: Yes (Hospitalization, Other)
  Sender: FDA-Public Use
  Company Number: MX-ROCHE-337151

PATIENT
  Age: 28 Year
  Sex: Male
  Weight: 92 kg

DRUGS (13)
  1. MYCOPHENOLATE MOFETIL [Suspect]
     Route: 048
     Dates: start: 20021219
  2. MYCOPHENOLATE MOFETIL [Suspect]
     Dosage: INCREASED.
     Route: 048
     Dates: start: 20030301
  3. DACLIZUMAB [Suspect]
     Route: 042
     Dates: start: 20021219, end: 20021219
  4. DACLIZUMAB [Suspect]
     Route: 042
     Dates: end: 20030221
  5. RAPAMUNE [Suspect]
     Route: 048
     Dates: start: 20021219
  6. RAPAMUNE [Suspect]
     Dosage: INCREASED.
     Route: 048
     Dates: start: 20030301, end: 20030401
  7. PREDNISONE [Suspect]
     Route: 048
     Dates: start: 20021219
  8. NIFEDIPINE [Concomitant]
     Route: 048
     Dates: start: 20021222
  9. RANITIDINE [Concomitant]
     Route: 048
     Dates: start: 20021222
  10. METOPROLOL SUCCINATE [Concomitant]
     Route: 048
     Dates: start: 20030103
  11. PRAVASTATIN [Concomitant]
     Route: 048
     Dates: start: 20021224
  12. CALCIUM CARBONATE [Concomitant]
     Route: 048
     Dates: start: 20021224
  13. SULFAMETHOXAZOL [Concomitant]
     Dosage: DOSE REPORTED AS 160/380 EVERY 24 HOURS.
     Route: 048
     Dates: start: 20021224

REACTIONS (2)
  - BLOOD CREATININE INCREASED [None]
  - LYMPHOCELE [None]
